FAERS Safety Report 5638821-X (Version None)
Quarter: 2008Q1

REPORT INFORMATION
  Report Type: 
  Country: None (occurrence: None)
  Receive Date: 20080226
  Receipt Date: 20080220
  Transmission Date: 20080703
  Serious: Yes (Other)
  Sender: FDA-Public Use
  Company Number: PHHY2008JP02040

PATIENT

DRUGS (1)
  1. TEGRETOL [Suspect]
     Indication: BIPOLAR DISORDER

REACTIONS (2)
  - GAIT DISTURBANCE [None]
  - MALAISE [None]
